FAERS Safety Report 9270902 (Version 2)
Quarter: 2013Q2

REPORT INFORMATION
  Report Type: Spontaneous
  Country: US (occurrence: US)
  Receive Date: 20130506
  Receipt Date: 20130603
  Transmission Date: 20140414
  Serious: No
  Sender: FDA-Public Use
  Company Number: US-009507513-1304USA015719

PATIENT
  Sex: Female
  Weight: 59.41 kg

DRUGS (2)
  1. ZETIA [Suspect]
     Indication: BLOOD CHOLESTEROL
     Dosage: 10 MG, QD
     Route: 048
     Dates: end: 201304
  2. ATENOLOL [Concomitant]

REACTIONS (2)
  - Burning sensation [Recovered/Resolved]
  - Muscle spasms [Recovered/Resolved]
